FAERS Safety Report 8839638 (Version 1)
Quarter: 2012Q4

REPORT INFORMATION
  Report Type: 
  Country: US (occurrence: US)
  Receive Date: 20121015
  Receipt Date: 20121015
  Transmission Date: 20130627
  Serious: No
  Sender: FDA-Public Use
  Company Number: US-JNJFOC-20121006090

PATIENT
  Sex: Female

DRUGS (6)
  1. REMICADE [Suspect]
     Indication: COLITIS ULCERATIVE
     Route: 042
  2. DIOVAN [Concomitant]
     Route: 065
  3. NEXIUM [Concomitant]
     Route: 065
  4. IRON [Concomitant]
     Route: 065
  5. SINGULAIR [Concomitant]
     Route: 065
  6. LIALDA [Concomitant]
     Route: 065

REACTIONS (1)
  - Herpes zoster [Not Recovered/Not Resolved]
